FAERS Safety Report 8204708-1 (Version None)
Quarter: 2012Q1

REPORT INFORMATION
  Report Type: 
  Country: None (occurrence: None)
  Receive Date: 20120313
  Receipt Date: 20120308
  Transmission Date: 20120608
  Serious: Yes (Disabling, Other)
  Sender: FDA-Public Use
  Company Number: BR-BAYER-2012-023712

PATIENT
  Age: 22 Year
  Sex: Female

DRUGS (3)
  1. INTERFERON BETA-1B [Suspect]
     Indication: RELAPSING-REMITTING MULTIPLE SCLEROSIS
     Dosage: 8 MIU, QOD
     Route: 058
     Dates: start: 20120125, end: 20120201
  2. TOPIRAMATE [Concomitant]
     Indication: DEPRESSION
     Dosage: 1 DF, QD
     Route: 048
     Dates: start: 20120201
  3. SERTRALINE HYDROCHLORIDE [Concomitant]
     Indication: DEPRESSION
     Dosage: DAILY DOSE 150 MG
     Route: 048
     Dates: start: 20120101

REACTIONS (2)
  - ABASIA [None]
  - MUSCULOSKELETAL STIFFNESS [None]
